FAERS Safety Report 9710479 (Version 1)
Quarter: 2013Q4

REPORT INFORMATION
  Report Type: Spontaneous
  Country: US (occurrence: US)
  Receive Date: 20131126
  Receipt Date: 20131126
  Transmission Date: 20140711
  Serious: No
  Sender: FDA-Public Use
  Company Number: US-BRISTOL-MYERS SQUIBB COMPANY-19439728

PATIENT
  Age: 76 Year
  Sex: Male
  Weight: 104.31 kg

DRUGS (13)
  1. BYDUREON [Suspect]
     Indication: TYPE 2 DIABETES MELLITUS
     Route: 058
     Dates: start: 2013
  2. CHONDROITIN SULFATE + GLUCOSAMINE [Concomitant]
     Dosage: 1DF:GLUCOSAMINE 1500/CHONDROITIN 1200
  3. METFORMIN HCL [Concomitant]
     Dosage: 1DF:750 TR
  4. LISINOPRIL [Concomitant]
  5. DIGOXIN [Concomitant]
  6. SIMVASTATIN [Concomitant]
  7. SOTALOL [Concomitant]
  8. HYDROCHLOROTHIAZIDE [Concomitant]
     Dosage: 1DF:12.5 UNIT NOS
  9. VITAMIN B [Concomitant]
  10. CENTRUM SILVER [Concomitant]
  11. CARTIA XT [Concomitant]
  12. JANUVIA [Concomitant]
  13. GLIPIZIDE [Concomitant]

REACTIONS (3)
  - Nausea [Unknown]
  - Vomiting [Unknown]
  - Weight increased [Unknown]
